FAERS Safety Report 8356855-1 (Version None)
Quarter: 2012Q2

REPORT INFORMATION
  Report Type: 
  Country: None (occurrence: None)
  Receive Date: 20120514
  Receipt Date: 20120430
  Transmission Date: 20120825
  Serious: Yes (Hospitalization)
  Sender: FDA-Public Use
  Company Number: US-VIROPHARMA INCORPORATED-20120323CINRY2771

PATIENT
  Sex: Female
  Weight: 103.5 kg

DRUGS (6)
  1. CINRYZE [Suspect]
     Indication: HEREDITARY ANGIOEDEMA
     Dates: start: 20120210, end: 20120322
  2. KALBITOR [Suspect]
     Indication: HEREDITARY ANGIOEDEMA
     Dosage: UNKNOWN
     Route: 065
     Dates: start: 20120126
  3. UNSPECIFIED ALLERGY INJECTION [Suspect]
     Indication: HYPERSENSITIVITY
     Dosage: UNKNOWN
     Route: 065
     Dates: start: 20120320, end: 20120320
  4. COREG [Concomitant]
     Indication: PRODUCT USED FOR UNKNOWN INDICATION
     Dosage: UNKNOWN
     Route: 065
  5. APIDRA [Concomitant]
     Indication: TYPE 1 DIABETES MELLITUS
     Dosage: UNKNOWN
     Route: 058
  6. LEXAPRO [Concomitant]
     Indication: PRODUCT USED FOR UNKNOWN INDICATION
     Dosage: UNKNOWN
     Route: 065

REACTIONS (4)
  - SEPSIS [None]
  - HEREDITARY ANGIOEDEMA [None]
  - ANGIOEDEMA [None]
  - PULMONARY EMBOLISM [None]
